FAERS Safety Report 23750610 (Version 4)
Quarter: 2024Q3

REPORT INFORMATION
  Report Type: Report from Study
  Country: JP (occurrence: JP)
  Receive Date: 20240417
  Receipt Date: 20240911
  Transmission Date: 20241017
  Serious: Yes (Other)
  Sender: ROCHE
  Company Number: JP-ROCHE-3545188

PATIENT
  Age: 82 Year
  Sex: Male
  Weight: 70.0 kg

DRUGS (12)
  1. HEMLIBRA [Suspect]
     Active Substance: EMICIZUMAB-KXWH
     Indication: Acquired haemophilia
     Dosage: 6 MILLIGRAM/KILOGRAM, SINGLE
     Route: 058
     Dates: start: 20220920, end: 20220920
  2. HEMLIBRA [Suspect]
     Active Substance: EMICIZUMAB-KXWH
     Dosage: 3 MILLIGRAM/KILOGRAM, SINGLE
     Route: 058
     Dates: start: 20220921, end: 20220921
  3. HEMLIBRA [Suspect]
     Active Substance: EMICIZUMAB-KXWH
     Dosage: 1.5 MILLIGRAM/KILOGRAM, ONCE/WEEK
     Route: 058
     Dates: start: 20220927, end: 20230418
  4. RITUXAN [Suspect]
     Active Substance: RITUXIMAB
     Indication: Acquired haemophilia
     Route: 041
     Dates: end: 20230221
  5. PREDNISOLONE [Suspect]
     Active Substance: PREDNISOLONE
     Indication: Product used for unknown indication
     Dosage: 35MG/DAY
     Route: 065
     Dates: start: 20220915, end: 20221019
  6. PREDNISOLONE [Suspect]
     Active Substance: PREDNISOLONE
     Dosage: 30MG/DAY
     Route: 065
     Dates: start: 20221020, end: 20221108
  7. PREDNISOLONE [Suspect]
     Active Substance: PREDNISOLONE
     Dosage: 25MG/DAY
     Route: 065
     Dates: start: 20221109, end: 20221122
  8. PREDNISOLONE [Suspect]
     Active Substance: PREDNISOLONE
     Dosage: 20MG/DAY
     Route: 065
     Dates: start: 20221123, end: 20221206
  9. PREDNISOLONE [Suspect]
     Active Substance: PREDNISOLONE
     Dosage: 15MG/DAY
     Route: 065
     Dates: start: 20221207, end: 20230425
  10. PREDNISOLONE [Suspect]
     Active Substance: PREDNISOLONE
     Dosage: 12.5MG/DAY
     Route: 065
     Dates: start: 20230426, end: 20230509
  11. PREDNISOLONE [Suspect]
     Active Substance: PREDNISOLONE
     Dosage: 10MG/DAY
     Route: 065
     Dates: start: 20230510, end: 20230516
  12. HUMAN RED BLOOD CELL [Concomitant]
     Active Substance: HUMAN RED BLOOD CELL
     Indication: Haemorrhage

REACTIONS (4)
  - Lumbar vertebral fracture [Recovered/Resolved]
  - Infusion related reaction [Recovered/Resolved]
  - Off label use [Unknown]
  - Colon cancer [Recovering/Resolving]

NARRATIVE: CASE EVENT DATE: 20221101
